FAERS Safety Report 22617284 (Version 1)
Quarter: 2023Q2

REPORT INFORMATION
  Report Type: Spontaneous
  Country: IT (occurrence: IT)
  Receive Date: 20230620
  Receipt Date: 20230620
  Transmission Date: 20230721
  Serious: Yes (Death, Hospitalization, Other)
  Sender: FDA-Public Use
  Company Number: IT-MINISAL02-344934

PATIENT
  Age: 59 Year
  Sex: Male

DRUGS (3)
  1. LORAZEPAM [Suspect]
     Active Substance: LORAZEPAM
     Indication: Intellectual disability
     Dosage: UNK
     Route: 065
  2. BIPERIDEN [Suspect]
     Active Substance: BIPERIDEN
     Indication: Intellectual disability
     Dosage: UNK
     Route: 065
  3. ZYPREXA [Suspect]
     Active Substance: OLANZAPINE
     Indication: Intellectual disability
     Dosage: UNK
     Route: 065

REACTIONS (4)
  - Intestinal perforation [Fatal]
  - Large intestine perforation [Fatal]
  - Megacolon [Fatal]
  - Peritonitis [Fatal]
